FAERS Safety Report 9277159 (Version 1)
Quarter: 2013Q2

REPORT INFORMATION
  Report Type: Spontaneous
  Country: ES (occurrence: ES)
  Receive Date: 20130508
  Receipt Date: 20130508
  Transmission Date: 20140414
  Serious: Yes (Other)
  Sender: FDA-Public Use
  Company Number: ES-ROCHE-1221883

PATIENT
  Age: 16 Year
  Sex: Female
  Weight: 90 kg

DRUGS (2)
  1. XENICAL [Suspect]
     Indication: OBESITY
     Route: 048
     Dates: start: 20120425, end: 20130105
  2. TOPIRAMATE [Suspect]
     Indication: HEADACHE
     Route: 048
     Dates: start: 201210, end: 20130105

REACTIONS (1)
  - Hepatitis [Recovered/Resolved]
